FAERS Safety Report 9549556 (Version 1)
Quarter: 2013Q3

REPORT INFORMATION
  Report Type: Spontaneous
  Country: US (occurrence: None)
  Receive Date: 20130719
  Receipt Date: 20130719
  Transmission Date: 20140515
  Serious: Yes (Hospitalization)
  Sender: FDA-Public Use
  Company Number: 2013BAX002801

PATIENT
  Age: 10 Year
  Sex: Female

DRUGS (4)
  1. CYCLOPHOSPHAMIDE [Suspect]
     Indication: ACUTE LYMPHOCYTIC LEUKAEMIA
     Dates: start: 20121217
  2. DASATINIB [Suspect]
     Dosage: 80 MG, 1 IN 1 D
     Route: 048
     Dates: start: 20121015
  3. CYTARABINE [Suspect]
     Indication: ACUTE LYMPHOCYTIC LEUKAEMIA
     Dates: start: 20121213, end: 20121216
  4. PREDNISONE [Concomitant]

REACTIONS (2)
  - Pyrexia [None]
  - Neutropenia [None]
